FAERS Safety Report 6878294-2 (Version None)
Quarter: 2010Q3

REPORT INFORMATION
  Report Type: 
  Country: None (occurrence: None)
  Receive Date: 20100728
  Receipt Date: 20100716
  Transmission Date: 20110219
  Serious: Yes (Other)
  Sender: FDA-Public Use
  Company Number: US-PFIZER INC-2010089297

PATIENT
  Age: 31 Year
  Sex: Male

DRUGS (1)
  1. CHANTIX [Suspect]
     Dosage: UNK MG, 2X/DAY
     Route: 048
     Dates: start: 20100713

REACTIONS (3)
  - CHEST PAIN [None]
  - HYPOAESTHESIA FACIAL [None]
  - PARAESTHESIA [None]
